FAERS Safety Report 5129372-X (Version None)
Quarter: 2006Q4

REPORT INFORMATION
  Report Type: 
  Country: None (occurrence: None)
  Receive Date: 20061018
  Receipt Date: 20060808
  Transmission Date: 20070319
  Serious: Yes (Hospitalization, Other)
  Sender: FDA-Public Use
  Company Number: PHEH2006US10224

PATIENT
  Age: 43 Year
  Sex: Male

DRUGS (6)
  1. EXJADE [Suspect]
     Indication: HAEMOCHROMATOSIS
     Dosage: 1000MG, BID
     Route: 048
     Dates: start: 20060228, end: 20060701
  2. VITAMIN B 1-6-12 [Concomitant]
     Indication: HAEMOLYTIC ANAEMIA
  3. FOLATE SODIUM [Concomitant]
  4. PROZAC [Concomitant]
     Dosage: 40 UNK, QD
  5. METOPIRONE [Concomitant]
     Dosage: 100 UNK, QD
  6. PROTONIX [Concomitant]
     Dosage: 40 UNK, QD

REACTIONS (14)
  - ABDOMINAL PAIN [None]
  - BIOPSY [None]
  - BLOOD AMYLASE INCREASED [None]
  - BLOOD CREATININE INCREASED [None]
  - COMPUTERISED TOMOGRAM ABNORMAL [None]
  - DEHYDRATION [None]
  - DIARRHOEA [None]
  - LIPASE INCREASED [None]
  - OEDEMA [None]
  - PANCREATITIS [None]
  - RENAL FAILURE ACUTE [None]
  - RENAL TUBULAR NECROSIS [None]
  - URINE OUTPUT DECREASED [None]
  - VOMITING [None]
